FAERS Safety Report 17806991 (Version 1)
Quarter: 2020Q2

REPORT INFORMATION
  Report Type: Report from Study
  Country: CO (occurrence: CO)
  Receive Date: 20200520
  Receipt Date: 20200520
  Transmission Date: 20200714
  Serious: Yes (Death, Hospitalization)
  Sender: FDA-Public Use
  Company Number: CO-ASTRAZENECA-2020SE47166

PATIENT
  Age: 375 Day
  Sex: Female
  Weight: 6 kg

DRUGS (1)
  1. SYNAGIS [Suspect]
     Active Substance: PALIVIZUMAB
     Indication: HEART DISEASE CONGENITAL
     Route: 030
     Dates: start: 20191216, end: 20191216

REACTIONS (4)
  - Death [Fatal]
  - Cardiac arrest [Not Recovered/Not Resolved]
  - Heart rate decreased [Not Recovered/Not Resolved]
  - Multiple organ dysfunction syndrome [Not Recovered/Not Resolved]

NARRATIVE: CASE EVENT DATE: 20200316
